FAERS Safety Report 18903339 (Version 2)
Quarter: 2021Q1

REPORT INFORMATION
  Report Type: Report from Study
  Country: None (occurrence: CO)
  Receive Date: 20210216
  Receipt Date: 20210308
  Transmission Date: 20210420
  Serious: Yes (Hospitalization, Disabling, Other)
  Sender: FDA-Public Use
  Company Number: CO-ABBVIE-21K-036-3773263-00

PATIENT
  Sex: Female
  Weight: 67 kg

DRUGS (2)
  1. SYMBICORT [Concomitant]
     Active Substance: BUDESONIDE\FORMOTEROL FUMARATE DIHYDRATE
     Indication: ASTHMA
  2. HUMIRA [Suspect]
     Active Substance: ADALIMUMAB
     Indication: ANKYLOSING SPONDYLITIS
     Route: 058
     Dates: start: 20180830, end: 20210107

REACTIONS (5)
  - Asthmatic crisis [Recovered/Resolved]
  - Asthmatic crisis [Recovered/Resolved]
  - Umbilical hernia [Recovered/Resolved]
  - Cholelithiasis [Recovered/Resolved]
  - Asthma [Recovering/Resolving]

NARRATIVE: CASE EVENT DATE: 2019
